FAERS Safety Report 7875292-7 (Version None)
Quarter: 2011Q4

REPORT INFORMATION
  Report Type: 
  Country: None (occurrence: None)
  Receive Date: 20111031
  Receipt Date: 20111024
  Transmission Date: 20120403
  Serious: Yes (Other)
  Sender: FDA-Public Use
  Company Number: SA-PFIZER INC-2011257586

PATIENT
  Age: 19 Year
  Sex: Male
  Weight: 50 kg

DRUGS (10)
  1. THIOPENTAL [Concomitant]
     Dosage: 1 MG/KG/H, UNK
  2. LORAZEPAM [Suspect]
     Dosage: UNK
     Route: 042
  3. THIOPENTAL [Concomitant]
     Dosage: 0.5 MG/KG/H, UNK
  4. THIOPENTAL [Concomitant]
     Dosage: 3 MG/KG, UNK
     Route: 040
  5. FENTANYL-100 [Suspect]
     Dosage: UNK
  6. MIDAZOLAM [Suspect]
     Dosage: UNK
  7. PROPOFOL [Suspect]
     Dosage: 5 MG/KG/H, UNK
     Route: 040
  8. PROPOFOL [Suspect]
     Dosage: 1 MG/KG/H, UNK
     Route: 040
  9. PROPOFOL [Suspect]
     Dosage: 1 MG/KG, UNK
     Route: 040
  10. PHENYTOIN SODIUM [Suspect]
     Dosage: UNK
     Route: 042

REACTIONS (1)
  - STATUS EPILEPTICUS [None]
